FAERS Safety Report 10697346 (Version 1)
Quarter: 2015Q1

REPORT INFORMATION
  Report Type: Spontaneous
  Country: US (occurrence: US)
  Receive Date: 20150108
  Receipt Date: 20150108
  Transmission Date: 20150721
  Serious: Yes (Hospitalization)
  Sender: FDA-Public Use
  Company Number: US-SA-2015SA001439

PATIENT
  Age: 87 Year
  Sex: Female

DRUGS (5)
  1. LANTUS SOLOSTAR [Suspect]
     Active Substance: INSULIN GLARGINE
     Indication: DIABETES MELLITUS
     Dosage: DOSE:60 UNIT(S)
     Route: 065
  2. LANTUS SOLOSTAR [Suspect]
     Active Substance: INSULIN GLARGINE
     Indication: DIABETES MELLITUS
     Dosage: DOSE:66 UNIT(S)
     Route: 065
  3. SOLOSTAR [Concomitant]
     Active Substance: DEVICE
  4. INSULIN [Concomitant]
     Active Substance: INSULIN NOS
  5. SOLOSTAR [Concomitant]
     Active Substance: DEVICE

REACTIONS (4)
  - Confusional state [Unknown]
  - Cerebrovascular accident [Unknown]
  - Tremor [Unknown]
  - Blood glucose increased [Unknown]

NARRATIVE: CASE EVENT DATE: 201501
